FAERS Safety Report 10331541 (Version 2)
Quarter: 2014Q3

REPORT INFORMATION
  Report Type: Report from Study
  Country: IL (occurrence: IL)
  Receive Date: 20140722
  Receipt Date: 20140724
  Transmission Date: 20150326
  Serious: Yes (Hospitalization)
  Sender: FDA-Public Use
  Company Number: PHHY2014IL088627

PATIENT
  Sex: Female

DRUGS (1)
  1. GILENYA [Suspect]
     Active Substance: FINGOLIMOD HYDROCHLORIDE
     Indication: MULTIPLE SCLEROSIS
     Dosage: 0.5 MG, QD
     Route: 048
     Dates: start: 20121129

REACTIONS (4)
  - Gait disturbance [Not Recovered/Not Resolved]
  - Muscular weakness [Unknown]
  - Lymphocyte count decreased [Unknown]
  - Balance disorder [Not Recovered/Not Resolved]
